FAERS Safety Report 8817727 (Version 1)
Quarter: 2012Q4

REPORT INFORMATION
  Report Type: 
  Country: US (occurrence: US)
  Receive Date: 20121001
  Receipt Date: 20121001
  Transmission Date: 20130627
  Serious: No
  Sender: FDA-Public Use
  Company Number: US-PFIZER INC-2012241922

PATIENT
  Age: 27 Year
  Sex: Male
  Weight: 58.96 kg

DRUGS (2)
  1. LYRICA [Suspect]
     Indication: HEADACHE
     Dosage: 50 mg, 1x/day
     Dates: start: 20120908
  2. LYRICA [Suspect]
     Indication: ASTHENOPIA

REACTIONS (1)
  - Drug ineffective for unapproved indication [Unknown]
